FAERS Safety Report 4525085-3 (Version None)
Quarter: 2004Q4

REPORT INFORMATION
  Report Type: 
  Country: None (occurrence: None)
  Receive Date: 20041117
  Receipt Date: 20031114
  Transmission Date: 20050328
  Serious: Yes (Other)
  Sender: FDA-Public Use
  Company Number: C2003-3030.01

PATIENT
  Age: 49 Year
  Sex: Male

DRUGS (10)
  1. CLOZAPINE [Suspect]
     Indication: SCHIZOAFFECTIVE DISORDER
     Dosage: 650MG QD THEN 500MG, ORAL
     Route: 048
     Dates: start: 20030408
  2. CLONAZEPAM [Concomitant]
  3. SERTRALINE [Concomitant]
  4. HALOPERIDOL [Concomitant]
  5. BENZTROPINE MESYLATE [Concomitant]
  6. DILTIAZEM [Concomitant]
  7. ENALAPRIL MALEATE [Concomitant]
  8. ALBUTEROL [Concomitant]
  9. VITAMIN E [Concomitant]
  10. PREDNISONE [Concomitant]

REACTIONS (1)
  - THROMBOCYTOPENIA [None]
